FAERS Safety Report 14919647 (Version 3)
Quarter: 2018Q2

REPORT INFORMATION
  Report Type: Spontaneous
  Country: BD (occurrence: BD)
  Receive Date: 20180521
  Receipt Date: 20180620
  Transmission Date: 20180711
  Serious: Yes (Disabling)
  Sender: FDA-Public Use
  Company Number: PHHY2018BD001753

PATIENT
  Sex: Male

DRUGS (1)
  1. ENTRESTO [Suspect]
     Active Substance: SACUBITRIL\VALSARTAN
     Indication: CARDIAC FAILURE
     Dosage: 50 MG, BID
     Route: 048
     Dates: start: 201805, end: 20180512

REACTIONS (1)
  - Oedema [Not Recovered/Not Resolved]

NARRATIVE: CASE EVENT DATE: 20180512
